FAERS Safety Report 18100620 (Version 1)
Quarter: 2020Q3

REPORT INFORMATION
  Report Type: Spontaneous
  Country: FR (occurrence: FR)
  Receive Date: 20200801
  Receipt Date: 20200801
  Transmission Date: 20201103
  Serious: Yes (Hospitalization)
  Sender: FDA-Public Use
  Company Number: FR-TEVA-2020-FR-1807225

PATIENT
  Age: 32 Year
  Sex: Male
  Weight: 115 kg

DRUGS (8)
  1. TRUXIMA [Suspect]
     Active Substance: RITUXIMAB-ABBS
     Indication: B-CELL LYMPHOMA
     Dosage: 750 MG
     Route: 041
     Dates: start: 20180816, end: 20180816
  2. DOXORUBICINE ACCORD [Suspect]
     Active Substance: DOXORUBICIN
     Indication: B-CELL LYMPHOMA
     Dosage: 150 MG
     Route: 041
     Dates: start: 20180816, end: 20180816
  3. METHOTREXATE. [Suspect]
     Active Substance: METHOTREXATE
     Indication: B-CELL LYMPHOMA
     Dosage: 15 MG
     Route: 037
     Dates: start: 20180816, end: 20180816
  4. ELDISINE [Suspect]
     Active Substance: VINDESINE SULFATE
     Indication: B-CELL LYMPHOMA
     Dosage: 4 MG
     Route: 042
     Dates: start: 20180816, end: 20180816
  5. ENDOXAN [Suspect]
     Active Substance: CYCLOPHOSPHAMIDE
     Indication: B-CELL LYMPHOMA
     Dosage: 2400 MG
     Route: 041
     Dates: start: 20180816, end: 20180816
  6. BLEOMYCINE BELLON 15 MG, POUDRE POUR SOLUTION INJECTABLE [Suspect]
     Active Substance: BLEOMYCIN SULFATE
     Indication: B-CELL LYMPHOMA
     Dosage: 10 MG
     Route: 042
     Dates: start: 20180816, end: 20180816
  7. UROMITEXAN [Suspect]
     Active Substance: MESNA
     Indication: B-CELL LYMPHOMA
     Dosage: 800 MG
     Route: 042
     Dates: start: 20180816, end: 20180816
  8. CORTANCYL 20 MG, COMPRIME [Suspect]
     Active Substance: PREDNISONE
     Indication: B-CELL LYMPHOMA
     Dosage: 120 MG
     Route: 048
     Dates: start: 20180817, end: 20180820

REACTIONS (1)
  - Febrile neutropenia [Recovered/Resolved]

NARRATIVE: CASE EVENT DATE: 20180826
